FAERS Safety Report 21965704 (Version 2)
Quarter: 2023Q1

REPORT INFORMATION
  Report Type: Other
  Country: US (occurrence: None)
  Receive Date: 20230208
  Receipt Date: 20230210
  Transmission Date: 20230418
  Serious: Yes (Other)
  Sender: FDA-Public Use
  Company Number: US-ROCHE-3276975

PATIENT
  Age: 63 Year
  Sex: Female

DRUGS (4)
  1. OCREVUS [Suspect]
     Active Substance: OCRELIZUMAB
     Indication: Primary progressive multiple sclerosis
     Dosage: DATE OF TREATMENT:27/APR/2018
     Route: 042
     Dates: start: 201804
  2. OCREVUS [Suspect]
     Active Substance: OCRELIZUMAB
     Indication: Relapsing-remitting multiple sclerosis
  3. CITALOPRAM HYDROBROMIDE [Concomitant]
     Active Substance: CITALOPRAM HYDROBROMIDE
  4. REBIF [Concomitant]
     Active Substance: INTERFERON BETA-1A

REACTIONS (9)
  - Hemiparesis [Unknown]
  - Gait disturbance [Unknown]
  - Fatigue [Unknown]
  - Vision blurred [Unknown]
  - Balance disorder [Unknown]
  - Fall [Unknown]
  - Asthenia [Unknown]
  - Muscle spasticity [Unknown]
  - JC polyomavirus test positive [Unknown]
